FAERS Safety Report 19406050 (Version 1)
Quarter: 2021Q2

REPORT INFORMATION
  Report Type: Spontaneous
  Country: GB (occurrence: GB)
  Receive Date: 20210611
  Receipt Date: 20210611
  Transmission Date: 20210717
  Serious: Yes (Hospitalization, Disabling, Other)
  Sender: FDA-Public Use
  Company Number: GB-009507513-2106GBR002792

PATIENT
  Age: 71 Year
  Sex: Male
  Weight: 83 kg

DRUGS (3)
  1. SALAMOL [SALBUTAMOL] [Concomitant]
     Active Substance: ALBUTEROL
     Dosage: 100 MICROGRAM AS NECESSARY
     Route: 055
  2. PEMBROLIZUMAB. [Suspect]
     Active Substance: PEMBROLIZUMAB
     Indication: LUNG ADENOCARCINOMA
     Dosage: 400 MILLIGRAM
     Route: 042
     Dates: end: 20210420
  3. DUAKLIR GENUAIR [Concomitant]
     Active Substance: ACLIDINIUM BROMIDE\FORMOTEROL FUMARATE
     Dosage: ACIDINUM 340MCG/ FORMOTEROL 12MCG
     Route: 055

REACTIONS (3)
  - Myositis [Not Recovered/Not Resolved]
  - Muscular weakness [Not Recovered/Not Resolved]
  - Myasthenia gravis [Not Recovered/Not Resolved]

NARRATIVE: CASE EVENT DATE: 20210501
